FAERS Safety Report 6340281-0 (Version None)
Quarter: 2009Q3

REPORT INFORMATION
  Report Type: 
  Country: None (occurrence: None)
  Receive Date: 20090902
  Receipt Date: 20090818
  Transmission Date: 20100115
  Serious: Yes (Hospitalization)
  Sender: FDA-Public Use
  Company Number: DSM-2009-01208

PATIENT
  Age: 89 Year
  Sex: Male
  Weight: 75 kg

DRUGS (4)
  1. SEVIKAR         (OLMESARTAN MEDOXOMIL/AMLODIPINE BESILATE) [Suspect]
     Indication: ESSENTIAL HYPERTENSION
     Dosage: 40/5 MG
     Dates: start: 20090203, end: 20090305
  2. BETABLOCKER (BETA BLOCKING AGENTS) [Concomitant]
  3. DIURETIC (DIURETICS) [Concomitant]
  4. ANTICOAGULANTS [Concomitant]

REACTIONS (1)
  - SYNCOPE [None]
